FAERS Safety Report 20405543 (Version 2)
Quarter: 2022Q1

REPORT INFORMATION
  Report Type: Other
  Country: MX (occurrence: None)
  Receive Date: 20220131
  Receipt Date: 20220308
  Transmission Date: 20220423
  Serious: Yes (Death, Hospitalization, Disabling)
  Sender: FDA-Public Use
  Company Number: MX-ROCHE-2975611

PATIENT
  Sex: Male

DRUGS (2)
  1. GAZYVA [Suspect]
     Active Substance: OBINUTUZUMAB
     Indication: Follicular lymphoma stage IV
     Dosage: FREQUENCY WERE NOT REPORTED
     Route: 042
     Dates: start: 20210503
  2. MABTHERA [Suspect]
     Active Substance: RITUXIMAB
     Indication: Follicular lymphoma
     Route: 065

REACTIONS (7)
  - Malaise [Unknown]
  - Speech disorder [Unknown]
  - Lip swelling [Unknown]
  - Nausea [Unknown]
  - Fatigue [Unknown]
  - Memory impairment [Unknown]
  - Death [Fatal]
